FAERS Safety Report 4599106-6 (Version None)
Quarter: 2005Q1

REPORT INFORMATION
  Report Type: 
  Country: None (occurrence: None)
  Receive Date: 20050302
  Receipt Date: 20050222
  Transmission Date: 20050727
  Serious: Yes (Other)
  Sender: FDA-Public Use
  Company Number: 2004-11-0831

PATIENT
  Age: 52 Year
  Sex: Male
  Weight: 102.0593 kg

DRUGS (3)
  1. REBETOL [Suspect]
     Indication: HEPATITIS C
     Dosage: ORAL
     Route: 048
     Dates: start: 20030501, end: 20030701
  2. INTRON A [Suspect]
     Indication: HEPATITIS C
     Dosage: SUBCUTANEOUS
     Route: 058
     Dates: start: 20030501, end: 20030701
  3. ALCOHOL [Concomitant]

REACTIONS (7)
  - ALANINE AMINOTRANSFERASE INCREASED [None]
  - ALCOHOL USE [None]
  - B-CELL LYMPHOMA [None]
  - LYMPHOPENIA [None]
  - NON-HODGKIN'S LYMPHOMA [None]
  - THROMBOCYTOPENIA [None]
  - TREATMENT NONCOMPLIANCE [None]
